FAERS Safety Report 15736966 (Version 2)
Quarter: 2019Q1

REPORT INFORMATION
  Report Type: Spontaneous
  Country: JP (occurrence: JP)
  Receive Date: 20181218
  Receipt Date: 20190110
  Transmission Date: 20190417
  Serious: Yes (Disabling, Other)
  Sender: FDA-Public Use
  Company Number: JP-009507513-1705JPN001684J

PATIENT
  Age: 69 Year
  Sex: Female
  Weight: 49 kg

DRUGS (2)
  1. LOXOPROFEN SODIUM HYDRATE [Concomitant]
     Active Substance: LOXOPROFEN SODIUM DIHYDRATE
     Indication: BACK PAIN
     Dosage: UNK UNK, PRN
     Route: 065
  2. KEYTRUDA [Suspect]
     Active Substance: PEMBROLIZUMAB
     Indication: LUNG ADENOCARCINOMA STAGE IV
     Dosage: 200 MILLIGRAM, Q3W
     Route: 041
     Dates: start: 20170510, end: 201811

REACTIONS (8)
  - Pyrexia [Recovering/Resolving]
  - Headache [Unknown]
  - Hypothyroidism [Not Recovered/Not Resolved]
  - Anaesthesia [Not Recovered/Not Resolved]
  - Metabolic encephalopathy [Recovering/Resolving]
  - Pruritus [Recovering/Resolving]
  - Hypoaesthesia [Recovered/Resolved]
  - Hypoaesthesia [Unknown]

NARRATIVE: CASE EVENT DATE: 201705
